FAERS Safety Report 19109273 (Version 1)
Quarter: 2021Q2

REPORT INFORMATION
  Report Type: Spontaneous
  Country: US (occurrence: US)
  Receive Date: 20210408
  Receipt Date: 20210408
  Transmission Date: 20210717
  Serious: Yes (Other)
  Sender: FDA-Public Use
  Company Number: US-PARATEK PHARMACEUTICALS, INC.-2021PTK00037

PATIENT
  Sex: Male

DRUGS (2)
  1. NUZYRA [Suspect]
     Active Substance: OMADACYCLINE
     Indication: LOCALISED INFECTION
     Dosage: 300 MG, 1X/DAY
     Route: 048
     Dates: start: 20210305, end: 20210316
  2. NUZYRA [Suspect]
     Active Substance: OMADACYCLINE
     Indication: STAPHYLOCOCCAL INFECTION
     Dosage: 450 MG, 1X/DAY
     Route: 048
     Dates: start: 20210303, end: 20210304

REACTIONS (2)
  - Wound infection staphylococcal [Not Recovered/Not Resolved]
  - Drug ineffective [Recovered/Resolved]

NARRATIVE: CASE EVENT DATE: 20210314
